FAERS Safety Report 19979456 (Version 1)
Quarter: 2021Q4

REPORT INFORMATION
  Report Type: Spontaneous
  Country: NZ (occurrence: NZ)
  Receive Date: 20211021
  Receipt Date: 20211021
  Transmission Date: 20220303
  Serious: Yes (Other)
  Sender: FDA-Public Use
  Company Number: NZ-BAYER-2021A228629

PATIENT
  Age: 53 Year
  Sex: Female
  Weight: 72 kg

DRUGS (1)
  1. MIRENA [Suspect]
     Active Substance: LEVONORGESTREL
     Indication: Hormone replacement therapy
     Dosage: 20 ?G, CONT
     Route: 015
     Dates: start: 20210928, end: 20210928

REACTIONS (5)
  - Procedural haemorrhage [Recovered/Resolved]
  - Complication of device insertion [Recovered/Resolved]
  - Off label use of device [None]
  - Device use issue [None]
  - Product use issue [None]

NARRATIVE: CASE EVENT DATE: 20210928
